FAERS Safety Report 13693865 (Version 1)
Quarter: 2017Q2

REPORT INFORMATION
  Report Type: Spontaneous
  Country: US (occurrence: US)
  Receive Date: 20170626
  Receipt Date: 20170626
  Transmission Date: 20170830
  Serious: Yes (Life-Threatening, Hospitalization, Other)
  Sender: FDA-Public Use
  Company Number: None

PATIENT
  Age: 4 Year
  Sex: Female
  Weight: 44.1 kg

DRUGS (1)
  1. BACTRIM [Suspect]
     Active Substance: SULFAMETHOXAZOLE\TRIMETHOPRIM
     Indication: SINUSITIS
     Route: 048
     Dates: start: 20170515, end: 20170525

REACTIONS (8)
  - Pyrexia [None]
  - Corneal lesion [None]
  - Weight decreased [None]
  - Stevens-Johnson syndrome [None]
  - Dyspnoea [None]
  - Mouth haemorrhage [None]
  - Toxic epidermal necrolysis [None]
  - Heart rate increased [None]

NARRATIVE: CASE EVENT DATE: 20070601
